FAERS Safety Report 4673429-4 (Version None)
Quarter: 2005Q2

REPORT INFORMATION
  Report Type: 
  Country: None (occurrence: None)
  Receive Date: 20050523
  Receipt Date: 20050512
  Transmission Date: 20051028
  Serious: Yes (Disabling, Other)
  Sender: FDA-Public Use
  Company Number: 2005-05-0596

PATIENT
  Age: 29 Year
  Sex: Female

DRUGS (1)
  1. DIPROSONE [Suspect]
     Indication: ECZEMA
     Dosage: 0.05% TOPICAL
     Route: 061

REACTIONS (5)
  - CLUMSINESS [None]
  - FALL [None]
  - GLAUCOMA [None]
  - TELANGIECTASIA [None]
  - VISUAL FIELD DEFECT [None]
